FAERS Safety Report 12821575 (Version 1)
Quarter: 2016Q4

REPORT INFORMATION
  Report Type: Spontaneous
  Country: GB (occurrence: GB)
  Receive Date: 20161006
  Receipt Date: 20161006
  Transmission Date: 20170207
  Serious: Yes (Life-Threatening, Other)
  Sender: FDA-Public Use
  Company Number: GB-B. BRAUN MEDICAL INC.-1058057

PATIENT
  Age: 50 Year
  Sex: Male

DRUGS (4)
  1. MEROPENEM. [Suspect]
     Active Substance: MEROPENEM
     Route: 042
     Dates: start: 20160908, end: 20160909
  2. ZOMORPH [Concomitant]
     Active Substance: MORPHINE SULFATE
  3. SODIUM CHLORIDE. [Suspect]
     Active Substance: SODIUM CHLORIDE
     Route: 042
     Dates: start: 20160908, end: 20160909
  4. PARACETAMOL [Concomitant]
     Active Substance: ACETAMINOPHEN

REACTIONS (3)
  - Unresponsive to stimuli [Recovered/Resolved]
  - Seizure [Recovered/Resolved]
  - Nausea [Unknown]

NARRATIVE: CASE EVENT DATE: 20160909
